FAERS Safety Report 26024506 (Version 1)
Quarter: 2025Q4

REPORT INFORMATION
  Report Type: Spontaneous
  Country: EU (occurrence: EU)
  Receive Date: 20251111
  Receipt Date: 20251111
  Transmission Date: 20260117
  Serious: Yes (Hospitalization, Other)
  Sender: CHEPLAPHARM
  Company Number: None

PATIENT
  Sex: Male
  Weight: 60 kg

DRUGS (2)
  1. OLANZAPINE PAMOATE [Suspect]
     Active Substance: OLANZAPINE PAMOATE
     Indication: Schizophrenia
     Route: 030
  2. OLANZAPINE PAMOATE [Suspect]
     Active Substance: OLANZAPINE PAMOATE
     Indication: Suicide attempt
     Route: 030

REACTIONS (8)
  - Suicidal ideation [Unknown]
  - Suicide attempt [Unknown]
  - Coma [Recovered/Resolved]
  - Fall [Unknown]
  - Accident [Unknown]
  - Antipsychotic drug level increased [Unknown]
  - Involuntary medical treatment [Unknown]
  - Product dosage form issue [Unknown]
